FAERS Safety Report 4281727-1 (Version None)
Quarter: 2004Q1

REPORT INFORMATION
  Report Type: 
  Country: None (occurrence: None)
  Receive Date: 20040129
  Receipt Date: 20040129
  Transmission Date: 20041129
  Serious: Yes (Other)
  Sender: FDA-Public Use
  Company Number: None

PATIENT
  Age: 54 Year
  Sex: Male

DRUGS (2)
  1. GENERIC DARVOCET N 100 [Suspect]
     Indication: PAIN
     Dosage: 1-2 PO Q 4-6 TABS PRN
     Route: 048
  2. GENERIC DARVOCET N 100 [Suspect]
     Indication: QUADRIPLEGIA
     Dosage: 1-2 PO Q 4-6 TABS PRN
     Route: 048

REACTIONS (2)
  - HYPERSENSITIVITY [None]
  - PHARMACEUTICAL PRODUCT COMPLAINT [None]
